FAERS Safety Report 15648793 (Version 1)
Quarter: 2018Q4

REPORT INFORMATION
  Report Type: Spontaneous
  Country: US (occurrence: US)
  Receive Date: 20181122
  Receipt Date: 20181122
  Transmission Date: 20190205
  Serious: Yes (Death, Life-Threatening, Hospitalization, Other)
  Sender: FDA-Public Use
  Company Number: US-TEVA-2018-US-977800

PATIENT
  Age: 69 Year
  Sex: Female

DRUGS (9)
  1. AZITHROMYCIN ANHYDROUS. [Suspect]
     Active Substance: AZITHROMYCIN ANHYDROUS
     Indication: ENCEPHALITIS PROTOZOAL
     Dosage: 20 MG/KG DAILY; ADMINISTERED IN ONE DOSE
     Route: 065
  2. FLUCONAZOLE. [Suspect]
     Active Substance: FLUCONAZOLE
     Indication: ENCEPHALITIS PROTOZOAL
     Dosage: 12 MG/KG DAILY; ADMINISTERED IN ONE DOSE
     Route: 065
  3. SULFADIAZINE. [Suspect]
     Active Substance: SULFADIAZINE
     Indication: ENCEPHALITIS PROTOZOAL
     Dosage: 6 GRAM DAILY;
     Route: 065
  4. LORAZEPAM. [Concomitant]
     Active Substance: LORAZEPAM
     Route: 065
  5. DEXAMETHASONE. [Suspect]
     Active Substance: DEXAMETHASONE
     Indication: GLIOMA
     Dosage: INITIAL DOSE NOT STATED; LATER THE DOSE WAS TAPERED
     Route: 065
  6. MILTEFOSINE [Suspect]
     Active Substance: MILTEFOSINE
     Indication: ENCEPHALITIS PROTOZOAL
     Dosage: THRICE DAILY
     Route: 065
  7. FLUCYTOSINE. [Suspect]
     Active Substance: FLUCYTOSINE
     Indication: ENCEPHALITIS PROTOZOAL
     Dosage: 150 MG/KG DAILY;
     Route: 065
  8. LEVETIRACETAM. [Concomitant]
     Active Substance: LEVETIRACETAM
     Route: 042
  9. PENTAMIDINE [Suspect]
     Active Substance: PENTAMIDINE
     Indication: ENCEPHALITIS PROTOZOAL
     Dosage: 4 MG/KG DAILY;
     Route: 065

REACTIONS (9)
  - Central nervous system lesion [Unknown]
  - Haemorrhage [Unknown]
  - Post procedural oedema [Unknown]
  - Hemiplegia [Unknown]
  - Post procedural haemorrhage [Unknown]
  - Drug ineffective [Unknown]
  - Necrosis [Unknown]
  - Balamuthia infection [Fatal]
  - Encephalitis protozoal [Fatal]
